FAERS Safety Report 6167780-9 (Version None)
Quarter: 2009Q2

REPORT INFORMATION
  Report Type: 
  Country: None (occurrence: None)
  Receive Date: 20090427
  Receipt Date: 20090416
  Transmission Date: 20091009
  Serious: Yes (Death)
  Sender: FDA-Public Use
  Company Number: SG-JNJFOC-20090304392

PATIENT
  Sex: Male

DRUGS (6)
  1. DORIBAX [Suspect]
     Indication: DRUG USE FOR UNKNOWN INDICATION
     Dosage: START DATE: 22 OR 23-DEC-2008  END DATE: 25-DEC-2008
     Route: 041
  2. VANCOMYCIN HCL [Concomitant]
  3. VORCONAZOLE [Concomitant]
  4. FILGRASTIM [Concomitant]
  5. ACYCLOVIR [Concomitant]
  6. NORADRENALINE [Concomitant]

REACTIONS (1)
  - SEPTIC SHOCK [None]
